FAERS Safety Report 9825248 (Version 1)
Quarter: 2013Q4

REPORT INFORMATION
  Report Type: Spontaneous
  Country: US (occurrence: None)
  Receive Date: 20131028
  Receipt Date: 20131028
  Transmission Date: 20140711
  Serious: Yes (Other)
  Sender: FDA-Public Use
  Company Number: 2013US002483

PATIENT
  Age: 66 Year
  Sex: Male
  Weight: 86 kg

DRUGS (3)
  1. ICLUSIG [Suspect]
     Indication: CHRONIC MYELOID LEUKAEMIA
     Route: 048
     Dates: start: 20130525
  2. INSULIN(INSULIN [Concomitant]
  3. REGLAN(METOCLOPRAMIDE) [Concomitant]

REACTIONS (1)
  - Diarrhoea [None]
